FAERS Safety Report 19106098 (Version 2)
Quarter: 2021Q2

REPORT INFORMATION
  Report Type: Spontaneous
  Country: US (occurrence: US)
  Receive Date: 20210407
  Receipt Date: 20210503
  Transmission Date: 20210717
  Serious: Yes (Death)
  Sender: FDA-Public Use
  Company Number: US-FARMAPROD-202101-0072

PATIENT
  Age: 85 Year
  Sex: Female

DRUGS (24)
  1. LATANOPROST. [Concomitant]
     Active Substance: LATANOPROST
  2. ARTIFICIAL TEARS [Concomitant]
     Active Substance: GLYCERIN\HYPROMELLOSES\POLYETHYLENE GLYCOL 400
  3. VITAMIN C [Concomitant]
     Active Substance: ASCORBIC ACID
  4. IRON [Concomitant]
     Active Substance: IRON
     Dosage: 159(45) MG EXTENDED RELEASE TABLET
  5. DORZOLAMIDE [Concomitant]
     Active Substance: DORZOLAMIDE
  6. DULCOLAX NOS [Concomitant]
     Active Substance: BISACODYL OR DOCUSATE SODIUM
  7. DOCUSATE SODIUM. [Concomitant]
     Active Substance: DOCUSATE SODIUM
  8. CRANBERRY. [Concomitant]
     Active Substance: CRANBERRY
  9. VITAMIN B12 [Concomitant]
     Active Substance: CYANOCOBALAMIN
  10. ASPIRINE [Concomitant]
     Active Substance: ASPIRIN
  11. TRAZODONE HYDROCHLORIDE. [Concomitant]
     Active Substance: TRAZODONE HYDROCHLORIDE
  12. OXERVATE [Suspect]
     Active Substance: CENEGERMIN-BKBJ
     Indication: NEUROTROPHIC KERATOPATHY
     Route: 047
     Dates: start: 20201228, end: 202101
  13. ERYTHROMYCIN. [Concomitant]
     Active Substance: ERYTHROMYCIN
  14. TRAZODONE HYDROCHLORIDE. [Concomitant]
     Active Substance: TRAZODONE HYDROCHLORIDE
  15. OMEPRAZOLE. [Concomitant]
     Active Substance: OMEPRAZOLE
     Dosage: DELAYED RELEASE CAPSULE
  16. BUPROPION HCL [Concomitant]
     Active Substance: BUPROPION HYDROCHLORIDE
  17. IPRATROPIUM/ALBUTEROL [Concomitant]
     Active Substance: ALBUTEROL\IPRATROPIUM
  18. GABAPENTIN. [Concomitant]
     Active Substance: GABAPENTIN
  19. OFLOXACIN. [Concomitant]
     Active Substance: OFLOXACIN
  20. TORSEMIDE. [Concomitant]
     Active Substance: TORSEMIDE
  21. COMBIGAN [Concomitant]
     Active Substance: BRIMONIDINE TARTRATE\TIMOLOL MALEATE
     Dosage: 0.2?0.5%
  22. PREDNISOLONE/NEPAFENAC [Concomitant]
  23. VITAMIN D3 [Concomitant]
     Active Substance: CHOLECALCIFEROL
  24. POTASSIUM ACETATE. [Concomitant]
     Active Substance: POTASSIUM ACETATE
     Dosage: VIAL

REACTIONS (1)
  - Death [Fatal]

NARRATIVE: CASE EVENT DATE: 20210114
